FAERS Safety Report 6524791-9 (Version None)
Quarter: 2010Q1

REPORT INFORMATION
  Report Type: 
  Country: None (occurrence: None)
  Receive Date: 20100104
  Receipt Date: 20091221
  Transmission Date: 20100710
  Serious: Yes (Life-Threatening, Other)
  Sender: FDA-Public Use
  Company Number: US-ELI_LILLY_AND_COMPANY-US200912005187

PATIENT
  Age: 83 Year
  Sex: Male

DRUGS (16)
  1. ZYPREXA [Suspect]
     Dosage: 5 MG, UNK
     Route: 030
     Dates: start: 20091221, end: 20091221
  2. VANCOMYCIN [Concomitant]
     Dosage: 2 MG, UNK
  3. AZACTAM [Concomitant]
     Dosage: 2 MG, UNK
  4. ASPIRIN [Concomitant]
  5. JANUVIA [Concomitant]
     Dosage: 50 MG, UNK
  6. PLAVIX [Concomitant]
     Dosage: 75 MG, UNK
  7. ZOLOFT [Concomitant]
     Dosage: 50 MG, UNK
  8. CATAPRES                                /UNK/ [Concomitant]
     Dosage: 0.1 MG, UNK
  9. ZOCOR [Concomitant]
     Dosage: 40 MG, UNK
  10. INSULIN DETEMIR [Concomitant]
  11. PEPCID [Concomitant]
     Dosage: 20 MG, UNK
  12. LOVENOX [Concomitant]
     Dosage: 30 MG, UNK
  13. LOPRESSOR [Concomitant]
     Dosage: 5 MG, UNK
  14. THIAMINE [Concomitant]
  15. FOLIC ACID [Concomitant]
  16. MULTI-VITAMIN [Concomitant]

REACTIONS (2)
  - OFF LABEL USE [None]
  - RESPIRATORY ARREST [None]
